FAERS Safety Report 6851326-3 (Version None)
Quarter: 2010Q3

REPORT INFORMATION
  Report Type: 
  Country: None (occurrence: None)
  Receive Date: 20100717
  Receipt Date: 20080115
  Transmission Date: 20110219
  Serious: No
  Sender: FDA-Public Use
  Company Number: US-PFIZER INC-2008004896

PATIENT
  Sex: Male
  Weight: 79.5 kg

DRUGS (8)
  1. CHANTIX [Suspect]
     Indication: SMOKING CESSATION THERAPY
     Dates: start: 20070101
  2. TAMSULOSIN HYDROCHLORIDE [Concomitant]
     Indication: POLLAKIURIA
  3. MORPHINE [Concomitant]
     Indication: BACK PAIN
  4. MORPHINE [Concomitant]
     Indication: ARTHRITIS
  5. PERCOCET [Concomitant]
     Indication: BACK PAIN
  6. PERCOCET [Concomitant]
     Indication: ARTHRITIS
  7. LYRICA [Concomitant]
     Indication: BACK PAIN
  8. LYRICA [Concomitant]
     Indication: ARTHRITIS

REACTIONS (2)
  - JOINT SWELLING [None]
  - MYALGIA [None]
